FAERS Safety Report 7514252-2 (Version None)
Quarter: 2011Q2

REPORT INFORMATION
  Report Type: 
  Country: None (occurrence: None)
  Receive Date: 20110601
  Receipt Date: 20110520
  Transmission Date: 20111010
  Serious: Yes (Other)
  Sender: FDA-Public Use
  Company Number: DE-AMGEN-DEUSP2011011783

PATIENT
  Age: 45 Year
  Sex: Female
  Weight: 58 kg

DRUGS (9)
  1. DECORTIN-H                         /00016201/ [Concomitant]
     Dosage: 5 MG, 1X/DAY
  2. CIPRAMIL                           /00582602/ [Concomitant]
     Dosage: 30 MG, 1X/DAY
  3. LACTULOSE [Concomitant]
     Dosage: 1 DF, 1X/DAY
  4. IBUPROFEN [Concomitant]
     Dosage: 200 MG, AS NEEDED, MAX. 400 MG PER DAY
  5. PANTOZOL                           /01263202/ [Concomitant]
     Dosage: 40 MG, 1X/DAY
  6. ISOZID-COMPOSITUM [Concomitant]
     Dosage: 300 MG, 1X/DAY
  7. QLAIRA [Concomitant]
     Dosage: UNK
  8. ENBREL [Suspect]
     Indication: RHEUMATOID ARTHRITIS
     Dosage: 50 MG, WEEKLY
     Route: 058
     Dates: start: 20090101, end: 20100101
  9. DEKRISTOL [Concomitant]
     Dosage: 20000 IU, EVERY 2 WEEKS

REACTIONS (3)
  - MYOCARDITIS [None]
  - PERTUSSIS [None]
  - CARDIOMYOPATHY [None]
